FAERS Safety Report 15905324 (Version 1)
Quarter: 2019Q1

REPORT INFORMATION
  Report Type: Report from Study
  Country: DE (occurrence: DE)
  Receive Date: 20190204
  Receipt Date: 20190204
  Transmission Date: 20190417
  Serious: Yes (Other)
  Sender: FDA-Public Use
  Company Number: PHHY2019DE025230

PATIENT
  Sex: Female
  Weight: 71.4 kg

DRUGS (21)
  1. COSENTYX [Suspect]
     Active Substance: SECUKINUMAB
     Dosage: 150 MG, PER APPLICATION (PRE-FILLED PEN)
     Route: 065
     Dates: start: 20180103, end: 20180103
  2. COSENTYX [Suspect]
     Active Substance: SECUKINUMAB
     Dosage: 150 MG, PER APPLICATION (PRE-FILLED PEN)
     Route: 065
     Dates: start: 20180110, end: 20180110
  3. COSENTYX [Suspect]
     Active Substance: SECUKINUMAB
     Dosage: 150 MG, PER APPLICATION (PRE-FILLED PEN)
     Route: 065
     Dates: start: 20180214, end: 20180214
  4. COSENTYX [Suspect]
     Active Substance: SECUKINUMAB
     Dosage: 150 MG, PER APPLICATION (PRE-FILLED PEN)
     Route: 065
     Dates: start: 20180520, end: 20180520
  5. COSENTYX [Suspect]
     Active Substance: SECUKINUMAB
     Dosage: 150 MG, PER APPLICATION (PRE-FILLED PEN)
     Route: 065
     Dates: start: 20180910, end: 20180910
  6. COSENTYX [Suspect]
     Active Substance: SECUKINUMAB
     Dosage: 150 MG, PER APPLICATION (PRE-FILLED PEN)
     Route: 065
     Dates: start: 20181218
  7. SYMBICORT [Concomitant]
     Active Substance: BUDESONIDE\FORMOTEROL FUMARATE DIHYDRATE
     Indication: ASTHMA
     Dosage: 200/6, 1 PUFF
     Route: 055
     Dates: start: 20171124
  8. COSENTYX [Suspect]
     Active Substance: SECUKINUMAB
     Dosage: 150 MG, PER APPLICATION (PRE-FILLED PEN)
     Route: 065
     Dates: start: 20180813, end: 20180813
  9. DOXEPIN [Concomitant]
     Active Substance: DOXEPIN
     Indication: DEPRESSION
     Dosage: 25 OT, ONCE IN THE EVENING
     Route: 048
     Dates: start: 20171124
  10. COSENTYX [Suspect]
     Active Substance: SECUKINUMAB
     Dosage: 150 MG, PER APPLICATION (PRE-FILLED PEN)
     Route: 065
     Dates: start: 20180117, end: 20180117
  11. L-THYROXINE [Concomitant]
     Active Substance: LEVOTHYROXINE
     Indication: AUTOIMMUNE THYROIDITIS
     Dosage: 150 OT, ONCE PER DAY
     Route: 048
     Dates: start: 20171124
  12. COSENTYX [Suspect]
     Active Substance: SECUKINUMAB
     Indication: ANKYLOSING SPONDYLITIS
     Dosage: 150 MG, PER APPLICATION (PRE-FILLED PEN)
     Route: 065
     Dates: start: 20171220, end: 20171220
  13. COSENTYX [Suspect]
     Active Substance: SECUKINUMAB
     Dosage: 150 MG, PER APPLICATION (PRE-FILLED PEN)
     Route: 065
     Dates: start: 20171227, end: 20171227
  14. COSENTYX [Suspect]
     Active Substance: SECUKINUMAB
     Dosage: 150 MG, PER APPLICATION (PRE-FILLED PEN)
     Route: 065
     Dates: start: 20180422, end: 20180422
  15. COSENTYX [Suspect]
     Active Substance: SECUKINUMAB
     Dosage: 150 MG, PER APPLICATION (PRE-FILLED PEN)
     Route: 065
     Dates: start: 20180617, end: 20180617
  16. ARCOXIA [Concomitant]
     Active Substance: ETORICOXIB
     Indication: ANKYLOSING SPONDYLITIS
     Dosage: 90 MG, QD
     Route: 048
     Dates: start: 20171124, end: 20180110
  17. ARCOXIA [Concomitant]
     Active Substance: ETORICOXIB
     Dosage: 90 MG, QOD
     Route: 048
     Dates: start: 20180110
  18. DEKRISTOL [Concomitant]
     Active Substance: CHOLECALCIFEROL
     Indication: OSTEOPOROSIS
     Dosage: 1000 IU, QD
     Route: 048
     Dates: start: 20171124
  19. SPIRIVA [Concomitant]
     Active Substance: TIOTROPIUM BROMIDE MONOHYDRATE
     Indication: ASTHMA
     Dosage: 2.5 U, 2 PUFFS IN THE MORNING
     Route: 048
     Dates: start: 20171124
  20. COSENTYX [Suspect]
     Active Substance: SECUKINUMAB
     Dosage: 150 MG, PER APPLICATION (PRE-FILLED PEN)
     Route: 065
     Dates: start: 20180314, end: 20180314
  21. METAMIZOLE [Concomitant]
     Active Substance: METAMIZOLE
     Indication: ANKYLOSING SPONDYLITIS
     Dosage: 500 MG, UP TO 3 X 30 GTTS
     Route: 048
     Dates: start: 20160524

REACTIONS (1)
  - Tooth abscess [Recovered/Resolved]

NARRATIVE: CASE EVENT DATE: 20181128
